FAERS Safety Report 18356258 (Version 1)
Quarter: 2020Q4

REPORT INFORMATION
  Report Type: Spontaneous
  Country: UZ (occurrence: UZ)
  Receive Date: 20201007
  Receipt Date: 20201007
  Transmission Date: 20210114
  Serious: Yes (Other)
  Sender: FDA-Public Use
  Company Number: UZ-JNJFOC-20200301354

PATIENT
  Age: 49 Year
  Sex: Male
  Weight: 101 kg

DRUGS (13)
  1. BEDAQUILINE [Suspect]
     Active Substance: BEDAQUILINE
     Route: 048
     Dates: end: 20200825
  2. BEDAQUILINE [Suspect]
     Active Substance: BEDAQUILINE
     Indication: TUBERCULOSIS
     Route: 048
     Dates: start: 20190411, end: 20200222
  3. IMIPENEM [Suspect]
     Active Substance: IMIPENEM
     Indication: TUBERCULOSIS
     Route: 065
     Dates: start: 201904, end: 20191009
  4. CYCLOSERINE. [Suspect]
     Active Substance: CYCLOSERINE
     Indication: TUBERCULOSIS
     Route: 065
     Dates: start: 20190411, end: 20200222
  5. CYCLOSERINE. [Suspect]
     Active Substance: CYCLOSERINE
     Route: 065
     Dates: end: 20200825
  6. MOXIFLOXACIN. [Suspect]
     Active Substance: MOXIFLOXACIN
     Indication: TUBERCULOSIS
     Route: 065
     Dates: start: 20190411, end: 20200222
  7. CLOFAZIMINE [Suspect]
     Active Substance: CLOFAZIMINE
     Indication: TUBERCULOSIS
     Route: 065
     Dates: start: 20190411, end: 20200222
  8. LINEZOLID. [Suspect]
     Active Substance: LINEZOLID
     Route: 065
     Dates: end: 20200825
  9. PYRAZINAMIDE. [Suspect]
     Active Substance: PYRAZINAMIDE
     Indication: TUBERCULOSIS
     Route: 065
     Dates: start: 201904, end: 20200222
  10. MOXIFLOXACIN. [Suspect]
     Active Substance: MOXIFLOXACIN
     Route: 065
     Dates: end: 20200825
  11. CLOFAZIMINE [Suspect]
     Active Substance: CLOFAZIMINE
     Route: 065
     Dates: end: 20200825
  12. LINEZOLID. [Suspect]
     Active Substance: LINEZOLID
     Indication: TUBERCULOSIS
     Route: 065
     Dates: start: 20190411, end: 20200222
  13. AMOXICLAV [Suspect]
     Active Substance: AMOXICILLIN\CLAVULANATE POTASSIUM
     Indication: TUBERCULOSIS
     Route: 065
     Dates: start: 201904, end: 20191009

REACTIONS (6)
  - Hepatitis C [Unknown]
  - Off label use [Unknown]
  - Alanine aminotransferase increased [Unknown]
  - Intentional product use issue [Unknown]
  - Diarrhoea [Unknown]
  - Nausea [Unknown]

NARRATIVE: CASE EVENT DATE: 201908
